FAERS Safety Report 7159302-0 (Version None)
Quarter: 2010Q4

REPORT INFORMATION
  Report Type: 
  Country: None (occurrence: None)
  Receive Date: 20101214
  Receipt Date: 20100816
  Transmission Date: 20110411
  Serious: No
  Sender: FDA-Public Use
  Company Number: US-ASTRAZENECA-2010SE38426

PATIENT
  Sex: Male

DRUGS (8)
  1. CRESTOR [Suspect]
     Route: 048
     Dates: start: 20071101, end: 20100804
  2. CRESTOR [Suspect]
     Route: 048
     Dates: start: 20100805, end: 20100807
  3. SEROQUEL [Concomitant]
  4. ALBUTEROL [Concomitant]
  5. VENTOLIN [Concomitant]
  6. ASTHMADEX [Concomitant]
  7. GENERIC PROCARDIA [Concomitant]
  8. ALENDRONATE SODIUM [Concomitant]

REACTIONS (1)
  - FOOD ALLERGY [None]
